FAERS Safety Report 17338586 (Version 1)
Quarter: 2020Q1

REPORT INFORMATION
  Report Type: Spontaneous
  Country: US (occurrence: US)
  Receive Date: 20200128
  Receipt Date: 20200128
  Transmission Date: 20200409
  Serious: Yes (Other)
  Sender: FDA-Public Use
  Company Number: None

PATIENT
  Age: 87 Year
  Sex: Male
  Weight: 67.5 kg

DRUGS (6)
  1. ISOSORBIDE DINITRATE 60MG [Concomitant]
  2. LORATADINE 10MG [Concomitant]
     Active Substance: LORATADINE
  3. ACETAMINOPHEN 650MG [Concomitant]
  4. OCTAGAM IMMUNE GLOBULIN (HUMAN) [Suspect]
     Active Substance: HUMAN IMMUNOGLOBULIN G
     Indication: MYASTHENIA GRAVIS
     Dosage: ?          OTHER FREQUENCY:EVERY 4 WEEKS;?
     Route: 041
     Dates: start: 20191227, end: 20191227
  5. CRESTOR [Concomitant]
     Active Substance: ROSUVASTATIN CALCIUM
  6. LUTEIN 6MG [Concomitant]

REACTIONS (6)
  - Dermatitis acneiform [None]
  - Urticaria [None]
  - Chills [None]
  - Rash [None]
  - Infusion related reaction [None]
  - Rash papular [None]

NARRATIVE: CASE EVENT DATE: 20191227
